FAERS Safety Report 25756024 (Version 4)
Quarter: 2025Q4

REPORT INFORMATION
  Report Type: Spontaneous
  Country: CA (occurrence: CA)
  Receive Date: 20250903
  Receipt Date: 20251110
  Transmission Date: 20260117
  Serious: Yes (Other)
  Sender: PFIZER
  Company Number: CA-PFIZER INC-202500114577

PATIENT
  Age: 22 Year
  Sex: Male
  Weight: 67 kg

DRUGS (8)
  1. IXIFI [Suspect]
     Active Substance: INFLIXIMAB-QBTX
     Indication: Crohn^s disease
     Dosage: 5 MG/KG, EVERY 4 WEEKS
     Route: 042
     Dates: start: 20250508
  2. IXIFI [Suspect]
     Active Substance: INFLIXIMAB-QBTX
     Dosage: 335 MG (5 MG/KG), EVERY 4 WEEKS
     Route: 042
     Dates: start: 20250603
  3. IXIFI [Suspect]
     Active Substance: INFLIXIMAB-QBTX
     Dosage: 325 MG, 4 WEEKS AND 1 DAY
     Route: 042
     Dates: start: 20250702
  4. IXIFI [Suspect]
     Active Substance: INFLIXIMAB-QBTX
     Dosage: 325 MG, EVERY 4 WEEKS
     Route: 042
     Dates: start: 20250730
  5. IXIFI [Suspect]
     Active Substance: INFLIXIMAB-QBTX
     Dosage: 325 MG, EVERY 4 WEEKS
     Route: 042
     Dates: start: 20250827
  6. IXIFI [Suspect]
     Active Substance: INFLIXIMAB-QBTX
     Dosage: 5 MG/KG, EVERY 4 WEEKS (430 MG EVERY 4 WEEKS)
     Route: 042
     Dates: start: 20250924
  7. IXIFI [Suspect]
     Active Substance: INFLIXIMAB-QBTX
     Dosage: 430 MG, 4 WEEKS AND 1 DAY (5MG/KG, EVERY 4 WEEK)
     Route: 042
     Dates: start: 20251023
  8. METHOTREXATE [Concomitant]
     Active Substance: METHOTREXATE
     Dosage: 1 DF
     Dates: start: 20240116

REACTIONS (6)
  - Anal fistula [Recovered/Resolved]
  - Fistula [Recovered/Resolved]
  - Decreased appetite [Not Recovered/Not Resolved]
  - Weight decreased [Not Recovered/Not Resolved]
  - Abdominal pain upper [Not Recovered/Not Resolved]
  - Fistula discharge [Not Recovered/Not Resolved]

NARRATIVE: CASE EVENT DATE: 20250101
